FAERS Safety Report 7548698-3 (Version None)
Quarter: 2011Q2

REPORT INFORMATION
  Report Type: 
  Country: None (occurrence: None)
  Receive Date: 20110608
  Receipt Date: 20110525
  Transmission Date: 20111010
  Serious: Yes (Life-Threatening, Disabling, Other)
  Sender: FDA-Public Use
  Company Number: GGEL20110500621

PATIENT
  Age: 52 Year
  Sex: Male
  Weight: 87 kg

DRUGS (9)
  1. RAMIPRIL [Concomitant]
  2. SALBUTAMOL (SALBUTAMOL) (SALBUTAMOL) [Concomitant]
  3. SERETIDE (FLUTICASOEN PROPIONATE MICRONISED, SALEMTEROL XINAFOATE MICR [Concomitant]
  4. MODAFINIL (MODAFINIL) (MODAFINIL) [Concomitant]
  5. OMEPRAZOLE [Concomitant]
  6. ROPINIROLE [Suspect]
     Indication: PARKINSON'S DISEASE
     Dosage: ORAL USE
     Dates: start: 20100428, end: 20110504
  7. LEVOTHYROXINE SODIUM (LEVOTHYROXINE, THYROXINE) (LEVOTHYROXINE, THYROX [Concomitant]
  8. MADOPAR (BENSERAZIDE HYDROCHLORIDE, LEVODOPA) (BENSERAZIDE HDYROCHLORI [Concomitant]
  9. OILATUM(LIGHT LIQUID PARFFIN, PARAFFIN LIGHT LIQUID, PARAFFIN LIQUID, [Concomitant]

REACTIONS (1)
  - CARDIAC FAILURE [None]
